FAERS Safety Report 8901765 (Version 1)
Quarter: 2012Q4

REPORT INFORMATION
  Report Type: Spontaneous
  Country: US (occurrence: None)
  Receive Date: 20121105
  Receipt Date: 20121105
  Transmission Date: 20130627
  Serious: Yes (Hospitalization)
  Sender: FDA-Public Use
  Company Number: DKLU1085306

PATIENT
  Age: 34 Year
  Sex: Female
  Weight: 98 kg

DRUGS (21)
  1. SABRIL (FOR ORAL SOLUTION) (SABRIL) (VIGABATRIN) (500 MG, POWDER FOR ORAL SOLUTION) [Suspect]
     Indication: COMPLEX PARTIAL SEIZURES
     Route: 048
     Dates: start: 20111007
  2. KLONOPIN (CLONAZEPAM) [Concomitant]
  3. FELBATOL (FELBAMATE) [Concomitant]
  4. LAMICTAL (LAMOTRIGINE) [Concomitant]
  5. DEPAKENE (VALPROIC ACID) [Concomitant]
  6. POLYETHYLENE GLYCOL (MACROGOL) [Concomitant]
  7. LEVOCARNITINE (LEVOCARNITINE) [Concomitant]
  8. DIAZEPAM (DIAZEPAM) [Concomitant]
  9. LIDOCAINE (LIDOCAINE) [Concomitant]
  10. IBUPROFEN (IBUPROFEN) [Concomitant]
  11. IC INFLUENZA VIRUS VACCINE (INFLUENZA VACCINE) [Concomitant]
  12. ARTIFICIAL TEARS (HYPROMELLOSE) [Concomitant]
  13. DALTEPARIN (DALTEPARIN) [Concomitant]
  14. MAGNESIUM OXIDE (MAGNESIUM OXIDE) [Concomitant]
  15. BACITRACIN (BACITRACIN) [Concomitant]
  16. FERROUS SULFATE (FERROUS SULFATE) [Concomitant]
  17. CALCIUM CARBONATE (CALCIUM CARBONATE) [Concomitant]
  18. DOCUSATE SODIUM (DOCUSATE SODIUM) [Concomitant]
  19. ZINC OXIDE (ZINC OXIDE) [Concomitant]
  20. IC PNEUMOCOCCAL 23-VALENT POLYSACCHARIDE VACCINE (PNEUMOCOCCAL VACCINE) [Concomitant]
  21. HYDROCORTISONE (HYDROCORTISONE) [Concomitant]

REACTIONS (14)
  - Urinary tract infection [None]
  - Clostridium difficile colitis [None]
  - Treatment noncompliance [None]
  - Rash [None]
  - Nausea [None]
  - Vomiting [None]
  - Convulsion [None]
  - Diarrhoea [None]
  - Blood pressure diastolic decreased [None]
  - Red blood cell count decreased [None]
  - Mean cell haemoglobin increased [None]
  - Lymphocyte percentage increased [None]
  - Blood albumin decreased [None]
  - Mental status changes [None]
